FAERS Safety Report 17181817 (Version 1)
Quarter: 2019Q4

REPORT INFORMATION
  Report Type: Spontaneous
  Country: SE (occurrence: SE)
  Receive Date: 20191220
  Receipt Date: 20191220
  Transmission Date: 20200122
  Serious: Yes (Congenital Anomaly, Other)
  Sender: FDA-Public Use
  Company Number: SE-TEVA-2019-SE-1154031

PATIENT
  Sex: Male

DRUGS (1)
  1. CABERGOLINE TEVA [Suspect]
     Active Substance: CABERGOLINE
     Dosage: 0.25 MG/WEEK
     Route: 064

REACTIONS (3)
  - Congenital melanocytic naevus [Unknown]
  - Foetal exposure during pregnancy [Unknown]
  - Anomaly of middle ear congenital [Not Recovered/Not Resolved]

NARRATIVE: CASE EVENT DATE: 2012
